FAERS Safety Report 6420980-2 (Version None)
Quarter: 2009Q4

REPORT INFORMATION
  Report Type: 
  Country: None (occurrence: None)
  Receive Date: 20091030
  Receipt Date: 20091019
  Transmission Date: 20100525
  Serious: Yes (Other)
  Sender: FDA-Public Use
  Company Number: RU-ROCHE-662839

PATIENT
  Age: 29 Year
  Sex: Female

DRUGS (3)
  1. PEGASYS [Suspect]
     Indication: HEPATITIS B
     Dosage: DOSE: 180 MKG, FREQUENCY: WEEKLY.
     Route: 058
     Dates: start: 20081001, end: 20090801
  2. TELBIVUDINE [Concomitant]
     Indication: HEPATITIS B
     Dosage: DRUG NAME: TELBIVUDINE/ SEBIVO, FREQUENCY: DAILY
     Route: 048
     Dates: start: 20090501, end: 20090801
  3. BARACLUDE [Concomitant]
     Indication: HEPATITIS B
     Dosage: FREQUENCY: DAILY, DRUG: ENTECAVIR/ BARACLUD
     Route: 048
     Dates: start: 20090401, end: 20090501

REACTIONS (2)
  - BLOOD CREATINE PHOSPHOKINASE INCREASED [None]
  - PERIPHERAL SENSORY NEUROPATHY [None]
